FAERS Safety Report 8900663 (Version 1)
Quarter: 2012Q4

REPORT INFORMATION
  Report Type: 
  Country: FR (occurrence: FR)
  Receive Date: 20121109
  Receipt Date: 20121109
  Transmission Date: 20130627
  Serious: Yes (Other)
  Sender: FDA-Public Use
  Company Number: FR-BAYER-2012-114192

PATIENT
  Age: 63 Year
  Sex: Male

DRUGS (5)
  1. SORAFENIB (RAF KINASE INHIBITOR) [Suspect]
     Indication: HEPATIC CANCER METASTATIC
     Dosage: UNK
     Route: 048
     Dates: start: 200902, end: 200911
  2. MYCOPHENOLATE MOFETIL [Suspect]
     Indication: IMMUNOSUPPRESSANT DRUG THERAPY
     Dosage: UNK
     Dates: start: 200810
  3. CORTICOSTEROIDS [Concomitant]
     Indication: IMMUNOSUPPRESSANT DRUG THERAPY
  4. EVEROLIMUS [Concomitant]
     Indication: IMMUNOSUPPRESSANT DRUG THERAPY
     Dosage: 0.5 mg, BID
  5. OSELTAMIVIR [Concomitant]
     Indication: H1N1 INFLUENZA

REACTIONS (3)
  - Pancytopenia [Unknown]
  - Influenza [Unknown]
  - Pulmonary tuberculosis [Recovered/Resolved]
